FAERS Safety Report 6684984-7 (Version None)
Quarter: 2010Q2

REPORT INFORMATION
  Report Type: 
  Country: None (occurrence: None)
  Receive Date: 20100416
  Receipt Date: 20100414
  Transmission Date: 20101027
  Serious: Yes (Hospitalization)
  Sender: FDA-Public Use
  Company Number: Z0003827A

PATIENT
  Age: 71 Year

DRUGS (7)
  1. OFATUMUMAB [Suspect]
     Route: 042
     Dates: start: 20100405
  2. ATORVASTATIN [Concomitant]
     Indication: HYPERTENSION
     Dosage: 10MG PER DAY
     Route: 048
     Dates: start: 20090829
  3. ASPIRIN [Concomitant]
     Dosage: 81MG PER DAY
     Route: 048
     Dates: start: 20100212
  4. BACLOFEN [Concomitant]
     Dosage: 20MG THREE TIMES PER DAY
     Route: 048
     Dates: start: 20090821
  5. CLOPIDOGREL BISULFATE [Concomitant]
     Dosage: 75MG PER DAY
     Route: 048
     Dates: start: 20090821
  6. ESOMEPRAZOLE [Concomitant]
     Dosage: 40MG PER DAY
     Route: 048
     Dates: start: 20090821
  7. GABAPENTIN [Concomitant]
     Indication: CANCER PAIN
     Dosage: 300MG FOUR TIMES PER DAY
     Route: 048
     Dates: start: 20090821

REACTIONS (1)
  - CHEST PAIN [None]
